FAERS Safety Report 9283488 (Version 1)
Quarter: 2013Q2

REPORT INFORMATION
  Report Type: Spontaneous
  Country: CA (occurrence: None)
  Receive Date: 20130506
  Receipt Date: 20130506
  Transmission Date: 20140414
  Serious: Yes (Hospitalization, Other)
  Sender: FDA-Public Use
  Company Number: 2013P1005132

PATIENT
  Age: 80 Year
  Sex: Female

DRUGS (5)
  1. HYDROMORPHONE [Suspect]
     Indication: BACK PAIN
     Dosage: PRN; PO
     Route: 048
  2. MORPHINE [Suspect]
     Indication: BACK PAIN
     Dosage: 5 MG; PRN
  3. HYDROMORPHONE [Suspect]
     Indication: BACK PAIN
     Route: 048
  4. CODEINE PHOSPHATE [Suspect]
     Indication: BACK PAIN
  5. ACETAMINOPHEN [Concomitant]

REACTIONS (3)
  - Breakthrough pain [None]
  - Colonic pseudo-obstruction [None]
  - Hyponatraemia [None]
